FAERS Safety Report 11656772 (Version 1)
Quarter: 2015Q4

REPORT INFORMATION
  Report Type: Spontaneous
  Country: US (occurrence: US)
  Receive Date: 20151023
  Receipt Date: 20151023
  Transmission Date: 20160304
  Serious: No
  Sender: FDA-Public Use
  Company Number: US-B.I. PHARMACEUTICALS,INC./RIDGEFIELD-2015-BI-56205BP

PATIENT
  Sex: Female

DRUGS (1)
  1. SPIRIVA [Suspect]
     Active Substance: TIOTROPIUM BROMIDE MONOHYDRATE
     Indication: CHRONIC OBSTRUCTIVE PULMONARY DISEASE
     Dosage: 2 PUF
     Route: 055
     Dates: end: 20151005

REACTIONS (12)
  - Epistaxis [Not Recovered/Not Resolved]
  - Ear discomfort [Not Recovered/Not Resolved]
  - Epistaxis [Recovered/Resolved]
  - Nasal dryness [Not Recovered/Not Resolved]
  - Ear disorder [Recovered/Resolved]
  - Oropharyngeal pain [Not Recovered/Not Resolved]
  - Aphonia [Unknown]
  - Nasal pruritus [Recovered/Resolved]
  - Ear pruritus [Recovered/Resolved]
  - Back pain [Recovered/Resolved]
  - Dysphonia [Unknown]
  - Chest discomfort [Recovered/Resolved]
